FAERS Safety Report 20254778 (Version 2)
Quarter: 2022Q1

REPORT INFORMATION
  Report Type: Report from Study
  Country: CA (occurrence: None)
  Receive Date: 20211230
  Receipt Date: 20220325
  Transmission Date: 20220423
  Serious: Yes (Hospitalization, Other)
  Sender: FDA-Public Use
  Company Number: CA-PFIZER INC-202101850451

PATIENT
  Age: 42 Year
  Sex: Female

DRUGS (7)
  1. METHOTREXATE [Suspect]
     Active Substance: METHOTREXATE
     Indication: Product used for unknown indication
     Route: 065
  2. CERTOLIZUMAB PEGOL [Suspect]
     Active Substance: CERTOLIZUMAB PEGOL
     Indication: Psoriatic arthropathy
     Route: 058
  3. CERTOLIZUMAB PEGOL [Suspect]
     Active Substance: CERTOLIZUMAB PEGOL
     Route: 058
  4. CERTOLIZUMAB PEGOL [Suspect]
     Active Substance: CERTOLIZUMAB PEGOL
     Route: 058
  5. BENADRYL [Concomitant]
     Active Substance: DIPHENHYDRAMINE HYDROCHLORIDE
     Indication: Hypersensitivity
     Route: 065
  6. EPIPEN [Concomitant]
     Active Substance: EPINEPHRINE
     Indication: Gait disturbance
     Route: 065
  7. EPIPEN JR [Concomitant]
     Active Substance: EPINEPHRINE
     Indication: Gait disturbance
     Route: 065

REACTIONS (14)
  - Drug ineffective [Unknown]
  - Product dose omission issue [Unknown]
  - Hypersensitivity [Unknown]
  - Arthropod bite [Unknown]
  - Disturbance in attention [Unknown]
  - Fluid retention [Unknown]
  - Gait disturbance [Unknown]
  - Dizziness [Unknown]
  - General physical health deterioration [Unknown]
  - Hyperaesthesia [Unknown]
  - Hypokinesia [Unknown]
  - Nausea [Unknown]
  - Pain [Unknown]
  - Vomiting [Unknown]
